FAERS Safety Report 7206480-0 (Version None)
Quarter: 2010Q4

REPORT INFORMATION
  Report Type: 
  Country: None (occurrence: None)
  Receive Date: 20101217
  Receipt Date: 20101202
  Transmission Date: 20110411
  Serious: Yes (Life-Threatening)
  Sender: FDA-Public Use
  Company Number: AUR-APL-2010-03041

PATIENT
  Age: 14 Year
  Sex: Male
  Weight: 44 kg

DRUGS (9)
  1. CEFTAZIDIME [Suspect]
     Indication: PSEUDOMONAS INFECTION
     Dosage: 2.2G - IV
     Route: 042
     Dates: start: 20101117
  2. AZITHROMYCIN [Concomitant]
  3. COLOMYCIN [Concomitant]
  4. CREON [Concomitant]
  5. PULMOZYME [Concomitant]
  6. ALBUTEROL [Concomitant]
  7. VITAMIN A [Concomitant]
  8. VITAMIN D [Concomitant]
  9. VITAMIN E [Concomitant]

REACTIONS (4)
  - EYE SWELLING [None]
  - THROAT IRRITATION [None]
  - URTICARIA [None]
  - WHEEZING [None]
